FAERS Safety Report 9671777 (Version 2)
Quarter: 2013Q4

REPORT INFORMATION
  Report Type: Report from Study
  Country: NO (occurrence: NO)
  Receive Date: 20131106
  Receipt Date: 20131106
  Transmission Date: 20140711
  Serious: Yes (Life-Threatening, Hospitalization)
  Sender: FDA-Public Use
  Company Number: PHHO2011NO16717

PATIENT
  Sex: 0

DRUGS (4)
  1. NEORAL [Suspect]
     Indication: HEART TRANSPLANT
     Dosage: UNK
     Route: 048
     Dates: start: 20100817
  2. MYCOPHENOLATE MOFETIL [Suspect]
     Indication: HEART TRANSPLANT
     Dosage: UNK
     Route: 048
     Dates: start: 20100817
  3. PREDNISOLONE [Suspect]
     Indication: HEART TRANSPLANT
     Dosage: UNK
     Dates: start: 20100823
  4. NO TREATMENT RECEIVED [Suspect]
     Indication: HEART TRANSPLANT
     Dosage: UNK

REACTIONS (2)
  - Mediastinitis [Recovered/Resolved]
  - Osteomyelitis [Recovered/Resolved with Sequelae]
